FAERS Safety Report 7443497-5 (Version None)
Quarter: 2011Q2

REPORT INFORMATION
  Report Type: 
  Country: None (occurrence: None)
  Receive Date: 20110428
  Receipt Date: 20110422
  Transmission Date: 20111010
  Serious: Yes (Hospitalization)
  Sender: FDA-Public Use
  Company Number: FR-B.I. PHARMACEUTICALS,INC./RIDGEFIELD-2011-FF-00422FF

PATIENT
  Sex: Female

DRUGS (1)
  1. PRADAXA [Suspect]
     Indication: CARDIOVASCULAR DISORDER
     Dosage: 110 MG
     Route: 048
     Dates: start: 20101101, end: 20110401

REACTIONS (4)
  - FRACTURE DELAYED UNION [None]
  - THROMBIN TIME PROLONGED [None]
  - FALL [None]
  - FEMORAL NECK FRACTURE [None]
